FAERS Safety Report 16114653 (Version 1)
Quarter: 2019Q1

REPORT INFORMATION
  Report Type: Spontaneous
  Country: FR (occurrence: FR)
  Receive Date: 20190325
  Receipt Date: 20190325
  Transmission Date: 20190418
  Serious: Yes (Hospitalization, Other)
  Sender: FDA-Public Use
  Company Number: FR-SA-2019SA079180

PATIENT
  Age: 63 Year
  Sex: Female
  Weight: 92 kg

DRUGS (6)
  1. AMLODIPINE [Concomitant]
     Active Substance: AMLODIPINE BESYLATE
  2. ENOXAPARIN SODIUM. [Concomitant]
     Active Substance: ENOXAPARIN SODIUM
  3. LEVOFLOXACIN. [Concomitant]
     Active Substance: LEVOFLOXACIN
  4. NEBIVOLOL. [Concomitant]
     Active Substance: NEBIVOLOL
  5. PERINDOPRIL [Concomitant]
     Active Substance: PERINDOPRIL
  6. RIFADINE [Suspect]
     Active Substance: RIFAMPIN
     Indication: POSTOPERATIVE WOUND INFECTION
     Dosage: UNK
     Route: 048
     Dates: start: 20190208, end: 20190223

REACTIONS (1)
  - Febrile neutropenia [Recovered/Resolved]

NARRATIVE: CASE EVENT DATE: 20190223
